FAERS Safety Report 4559337-8 (Version None)
Quarter: 2005Q1

REPORT INFORMATION
  Report Type: 
  Country: None (occurrence: None)
  Receive Date: 20050124
  Receipt Date: 20050112
  Transmission Date: 20050727
  Serious: Yes (Other)
  Sender: FDA-Public Use
  Company Number: US-JNJFOC-20041000052

PATIENT
  Sex: Female
  Weight: 53.07 kg

DRUGS (2)
  1. ORTHO EVRA [Suspect]
     Indication: CONTRACEPTION
     Route: 062
     Dates: start: 20021001, end: 20040201
  2. PAXIL [Concomitant]

REACTIONS (1)
  - CEREBROVASCULAR ACCIDENT [None]
